FAERS Safety Report 4514070-3 (Version None)
Quarter: 2004Q4

REPORT INFORMATION
  Report Type: 
  Country: None (occurrence: None)
  Receive Date: 20041130
  Receipt Date: 20041119
  Transmission Date: 20050328
  Serious: Yes (Death)
  Sender: FDA-Public Use
  Company Number: JP-GLAXOSMITHKLINE-B0357947A

PATIENT
  Age: 54 Year
  Sex: Male

DRUGS (1)
  1. ZEFIX [Suspect]
     Route: 048
     Dates: start: 20010601, end: 20021001

REACTIONS (1)
  - HEPATITIS FULMINANT [None]
